FAERS Safety Report 18275958 (Version 1)
Quarter: 2020Q3

REPORT INFORMATION
  Report Type: Spontaneous
  Country: US (occurrence: US)
  Receive Date: 20200917
  Receipt Date: 20200917
  Transmission Date: 20201103
  Serious: Yes (Hospitalization)
  Sender: FDA-Public Use
  Company Number: US-PFIZER INC-2020355241

PATIENT

DRUGS (1)
  1. ADVIL [Suspect]
     Active Substance: IBUPROFEN
     Dosage: UNK

REACTIONS (5)
  - Gastrointestinal ulcer haemorrhage [Recovered/Resolved]
  - Pancreatic disorder [Unknown]
  - Internal haemorrhage [Recovered/Resolved]
  - Ear haemorrhage [Recovered/Resolved]
  - Hypoaesthesia oral [Unknown]
